FAERS Safety Report 25923889 (Version 1)
Quarter: 2025Q4

REPORT INFORMATION
  Report Type: Spontaneous
  Country: UA (occurrence: UA)
  Receive Date: 20251015
  Receipt Date: 20251015
  Transmission Date: 20260117
  Serious: Yes (Death, Hospitalization)
  Sender: MYLAN
  Company Number: UA-MYLANLABS-2025M1086603

PATIENT

DRUGS (4)
  1. EPINEPHRINE [Suspect]
     Active Substance: EPINEPHRINE
     Indication: Cardiac arrest
     Dosage: 1:10,000 THREE TIMES
  2. EPINEPHRINE [Suspect]
     Active Substance: EPINEPHRINE
     Dosage: 1:10,000 THREE TIMES
     Route: 065
  3. EPINEPHRINE [Suspect]
     Active Substance: EPINEPHRINE
     Dosage: 1:10,000 THREE TIMES
     Route: 065
  4. EPINEPHRINE [Suspect]
     Active Substance: EPINEPHRINE
     Dosage: 1:10,000 THREE TIMES

REACTIONS (1)
  - Drug ineffective [Fatal]
